FAERS Safety Report 9152484 (Version 1)
Quarter: 2013Q1

REPORT INFORMATION
  Report Type: Spontaneous
  Country: US (occurrence: US)
  Receive Date: 20130308
  Receipt Date: 20130308
  Transmission Date: 20140127
  Serious: Yes (Other)
  Sender: FDA-Public Use
  Company Number: US-ROXANE LABORATORIES, INC.-2013-RO-00338RO

PATIENT
  Age: 10 Year
  Sex: Male

DRUGS (9)
  1. METHADONE [Suspect]
     Indication: PAIN MANAGEMENT
  2. LORAZEPAM [Suspect]
     Indication: ANXIETY
  3. QUETIAPINE FUMARATE [Suspect]
     Indication: ABNORMAL BEHAVIOUR
  4. CATAPRES [Suspect]
     Indication: HYPERTENSION
     Route: 062
  5. METHYLPREDNISOLONE [Suspect]
     Indication: GRAFT VERSUS HOST DISEASE
  6. MELATONIN [Suspect]
     Indication: INSOMNIA
  7. GABAPENTIN [Suspect]
     Indication: PAIN
  8. DIURETICS [Suspect]
     Indication: HYPERTENSION
  9. NALOXONE [Suspect]

REACTIONS (9)
  - Sleep apnoea syndrome [Unknown]
  - Abnormal weight gain [Unknown]
  - Alopecia [Unknown]
  - Cushingoid [Unknown]
  - Atelectasis [Unknown]
  - Renal failure [Unknown]
  - Drug clearance decreased [Unknown]
  - Metabolic alkalosis [Unknown]
  - Nuclear magnetic resonance imaging brain abnormal [Unknown]
